FAERS Safety Report 11059604 (Version 3)
Quarter: 2015Q3

REPORT INFORMATION
  Report Type: Spontaneous
  Country: DE (occurrence: DE)
  Receive Date: 20150423
  Receipt Date: 20150917
  Transmission Date: 20151125
  Serious: Yes (Disabling, Other)
  Sender: FDA-Public Use
  Company Number: DE-PFIZER INC-2015136220

PATIENT
  Age: 74 Year
  Sex: Male
  Weight: 89 kg

DRUGS (1)
  1. ZYVOXID [Suspect]
     Active Substance: LINEZOLID
     Indication: PNEUMONIA
     Dosage: 1 DF, 2X/DAY
     Route: 048
     Dates: start: 20150306, end: 20150326

REACTIONS (7)
  - Blindness unilateral [Not Recovered/Not Resolved]
  - Chills [Unknown]
  - Abdominal pain [Not Recovered/Not Resolved]
  - Hemiplegia [Not Recovered/Not Resolved]
  - Eye disorder [Unknown]
  - Cerebrovascular disorder [Not Recovered/Not Resolved]
  - Pyrexia [Not Recovered/Not Resolved]

NARRATIVE: CASE EVENT DATE: 20150311
